FAERS Safety Report 26199406 (Version 1)
Quarter: 2025Q4

REPORT INFORMATION
  Report Type: Report from Study
  Country: US (occurrence: US)
  Receive Date: 20251225
  Receipt Date: 20251225
  Transmission Date: 20260117
  Serious: No
  Sender: DR REDDYS
  Company Number: US-DRL-USA-USA/2025/12/018799

PATIENT

DRUGS (3)
  1. ACCUTANE [Suspect]
     Active Substance: ISOTRETINOIN
     Indication: Product used for unknown indication
     Dosage: NDC NUMBER: 72143-0252-30
  2. ACCUTANE [Suspect]
     Active Substance: ISOTRETINOIN
     Dosage: NDC NUMBER: 72143-0253-30
  3. ACCUTANE [Suspect]
     Active Substance: ISOTRETINOIN
     Dosage: NDC NUMBER: 72143-0254-30

REACTIONS (1)
  - Blood urine present [Unknown]
